FAERS Safety Report 11681779 (Version 2)
Quarter: 2015Q4

REPORT INFORMATION
  Report Type: Report from Study
  Country: US (occurrence: US)
  Receive Date: 20151029
  Receipt Date: 20151105
  Transmission Date: 20160304
  Serious: Yes (Other)
  Sender: FDA-Public Use
  Company Number: US-AMGEN-USASL2015111818

PATIENT
  Age: 60 Year
  Sex: Female

DRUGS (1)
  1. PROLIA [Suspect]
     Active Substance: DENOSUMAB
     Indication: PRODUCT USED FOR UNKNOWN INDICATION
     Dosage: 60 UNK, Q6MO
     Route: 058
     Dates: start: 2013

REACTIONS (9)
  - Atrial fibrillation [Unknown]
  - Onychomadesis [Not Recovered/Not Resolved]
  - Blister [Not Recovered/Not Resolved]
  - Skin disorder [Unknown]
  - Eczema [Unknown]
  - Cholesteatoma [Unknown]
  - Gluten sensitivity [Unknown]
  - Sinus bradycardia [Unknown]
  - Transient ischaemic attack [Unknown]

NARRATIVE: CASE EVENT DATE: 201504
